FAERS Safety Report 8977063 (Version 1)
Quarter: 2012Q4

REPORT INFORMATION
  Report Type: 
  Country: ES (occurrence: ES)
  Receive Date: 20121220
  Receipt Date: 20121220
  Transmission Date: 20130627
  Serious: Yes (Other)
  Sender: FDA-Public Use
  Company Number: ES-BAXTER-2012BAX027603

PATIENT
  Sex: Male

DRUGS (1)
  1. ADVATE [Suspect]
     Indication: HEMOPHILIA A
     Route: 042
     Dates: start: 201202, end: 201202

REACTIONS (2)
  - Cyanosis [Recovered/Resolved]
  - Erythema [Recovered/Resolved]
